FAERS Safety Report 6730603-0 (Version None)
Quarter: 2010Q2

REPORT INFORMATION
  Report Type: 
  Country: None (occurrence: None)
  Receive Date: 20100518
  Receipt Date: 20091112
  Transmission Date: 20101027
  Serious: Yes (Hospitalization)
  Sender: FDA-Public Use
  Company Number: DE-SANOFI-AVENTIS-2009SA001118

PATIENT
  Age: 70 Year
  Sex: Male

DRUGS (19)
  1. ERGENYL [Suspect]
     Indication: SCHIZOAFFECTIVE DISORDER
     Route: 048
     Dates: end: 20090526
  2. ERGENYL [Suspect]
     Route: 048
     Dates: end: 20090526
  3. ERGENYL [Suspect]
     Route: 048
     Dates: start: 20090527, end: 20090528
  4. ERGENYL [Suspect]
     Route: 048
     Dates: start: 20090527, end: 20090528
  5. ERGENYL [Suspect]
     Route: 048
     Dates: start: 20090529, end: 20090603
  6. ERGENYL [Suspect]
     Route: 048
     Dates: start: 20090529, end: 20090603
  7. ERGENYL [Suspect]
     Route: 048
     Dates: start: 20090604, end: 20090605
  8. ERGENYL [Suspect]
     Route: 048
     Dates: start: 20090604, end: 20090605
  9. FUROSEMID [Suspect]
     Indication: DRUG USE FOR UNKNOWN INDICATION
     Route: 048
     Dates: start: 20090430, end: 20090519
  10. QUILONUM - SLOW RELEASE [Suspect]
     Indication: DRUG USE FOR UNKNOWN INDICATION
     Route: 048
     Dates: end: 20090519
  11. EUNERPAN [Suspect]
     Indication: DRUG USE FOR UNKNOWN INDICATION
     Route: 048
     Dates: end: 20090524
  12. EUNERPAN [Suspect]
     Route: 048
     Dates: start: 20090525, end: 20090604
  13. EUNERPAN [Suspect]
     Route: 048
     Dates: start: 20090605, end: 20090609
  14. ENALAPRIL/HCT [Suspect]
     Indication: DRUG USE FOR UNKNOWN INDICATION
     Route: 048
     Dates: end: 20090519
  15. HALOPERIDOL [Suspect]
     Indication: DRUG USE FOR UNKNOWN INDICATION
     Route: 030
  16. HYDROCHLOROTHIAZIDE [Suspect]
     Indication: DRUG USE FOR UNKNOWN INDICATION
     Route: 048
     Dates: end: 20090519
  17. ALLOPURINOL [Concomitant]
     Indication: GOUT
     Route: 048
     Dates: end: 20090519
  18. AKINETON [Concomitant]
     Indication: DRUG USE FOR UNKNOWN INDICATION
     Route: 048
     Dates: start: 20090101
  19. AKINETON [Concomitant]
     Route: 048
     Dates: end: 20090525

REACTIONS (5)
  - ATRIOVENTRICULAR BLOCK COMPLETE [None]
  - BRADYCARDIA [None]
  - DRUG INTERACTION [None]
  - GENERAL PHYSICAL HEALTH DETERIORATION [None]
  - RENAL FAILURE [None]
